FAERS Safety Report 9202087 (Version 1)
Quarter: 2013Q2

REPORT INFORMATION
  Report Type: Spontaneous
  Country: KR (occurrence: KR)
  Receive Date: 20130401
  Receipt Date: 20130401
  Transmission Date: 20140414
  Serious: Yes (Hospitalization)
  Sender: FDA-Public Use
  Company Number: KR-PFIZER INC-2013099050

PATIENT
  Age: 58 Year
  Sex: Female

DRUGS (3)
  1. GEMCITABINE HYDROCHLORIDE [Suspect]
     Indication: GALLBLADDER CANCER METASTATIC
     Dosage: 1200 MG/M2, CYCLIC (DAYS 1 AND 8 OF EACH 21 DAY CYCLE)
  2. CISPLATIN [Suspect]
     Indication: GALLBLADDER CANCER METASTATIC
     Dosage: 60 MG/M2, CYCLIC (ON DAY 1 OF EACH 21- DAY CYCLE)
  3. CAPECITABINE [Concomitant]
     Indication: GALLBLADDER CANCER METASTATIC
     Dosage: CYCLIC

REACTIONS (1)
  - Posterior reversible encephalopathy syndrome [Recovered/Resolved]
